FAERS Safety Report 5388513-X (Version None)
Quarter: 2007Q3

REPORT INFORMATION
  Report Type: 
  Country: None (occurrence: None)
  Receive Date: 20070716
  Receipt Date: 20060922
  Transmission Date: 20080115
  Serious: No
  Sender: FDA-Public Use
  Company Number: US-BRISTOL-MYERS SQUIBB COMPANY-13519509

PATIENT
  Age: 60 Year
  Sex: Female

DRUGS (3)
  1. CARBIDOPA + LEVODOPA CR TABS 25/100MG [Suspect]
     Dosage: 25-100MG INCREASED DOSAGE TO 1 TAB TID AFTER 1 WEEK.
     Dates: start: 20050501
  2. REQUIP [Concomitant]
  3. AMANTADINE HCL [Concomitant]

REACTIONS (1)
  - OEDEMA PERIPHERAL [None]
